FAERS Safety Report 7347418-5 (Version None)
Quarter: 2011Q1

REPORT INFORMATION
  Report Type: 
  Country: None (occurrence: None)
  Receive Date: 20110223
  Receipt Date: 20110208
  Transmission Date: 20110831
  Serious: Yes (Hospitalization, Other)
  Sender: FDA-Public Use
  Company Number: 2011PROUSA00161

PATIENT
  Age: 58 Year
  Sex: Male
  Weight: 98 kg

DRUGS (5)
  1. PROVENGE [Suspect]
     Indication: PROSTATE CANCER METASTATIC
     Dosage: 250 ML, SINGLE, INTRAVENOUS
     Route: 042
     Dates: start: 20110113, end: 20110113
  2. PROVENGE [Suspect]
     Indication: PROSTATE CANCER METASTATIC
     Dosage: 250 ML, SINGLE, INTRAVENOUS
     Route: 042
     Dates: start: 20101213, end: 20101213
  3. PROVENGE [Suspect]
     Indication: PROSTATE CANCER METASTATIC
     Dosage: 250 ML, SINGLE, INTRAVENOUS
     Route: 042
     Dates: start: 20110127, end: 20110127
  4. PROVENGE [Suspect]
  5. PROVENGE [Suspect]

REACTIONS (21)
  - BLOOD PRESSURE INCREASED [None]
  - RED BLOOD CELL COUNT DECREASED [None]
  - PYREXIA [None]
  - PROSTATOMEGALY [None]
  - INFUSION RELATED REACTION [None]
  - BLOOD GLUCOSE INCREASED [None]
  - CHILLS [None]
  - TREMOR [None]
  - HAEMOGLOBIN DECREASED [None]
  - ANAEMIA [None]
  - METASTASES TO BONE [None]
  - LACRIMATION INCREASED [None]
  - INSOMNIA [None]
  - HEART RATE INCREASED [None]
  - BLOOD SODIUM DECREASED [None]
  - HAEMATOCRIT DECREASED [None]
  - BLADDER OBSTRUCTION [None]
  - PAIN IN JAW [None]
  - EMOTIONAL DISTRESS [None]
  - BLOOD ALKALINE PHOSPHATASE INCREASED [None]
  - PROSTATIC SPECIFIC ANTIGEN INCREASED [None]
